FAERS Safety Report 8453163-5 (Version None)
Quarter: 2012Q2

REPORT INFORMATION
  Report Type: 
  Country: None (occurrence: None)
  Receive Date: 20120620
  Receipt Date: 20120521
  Transmission Date: 20120825
  Serious: No
  Sender: FDA-Public Use
  Company Number: US-VERTEX PHARMACEUTICALS INC.-AE-2012-006818

PATIENT
  Sex: Male
  Weight: 70.824 kg

DRUGS (3)
  1. PEGASYS [Concomitant]
     Indication: HEPATITIS C
     Route: 058
  2. RIBASPHERE [Concomitant]
     Indication: HEPATITIS C
  3. INCIVEK [Suspect]
     Indication: HEPATITIS C
     Route: 048

REACTIONS (5)
  - RASH GENERALISED [None]
  - OFF LABEL USE [None]
  - FATIGUE [None]
  - PRURITUS GENERALISED [None]
  - ANAEMIA [None]
